FAERS Safety Report 8594252-4 (Version None)
Quarter: 2012Q3

REPORT INFORMATION
  Report Type: 
  Country: None (occurrence: None)
  Receive Date: 20120815
  Receipt Date: 20120807
  Transmission Date: 20120928
  Serious: Yes (Other)
  Sender: FDA-Public Use
  Company Number: TR-AMGEN-TURSP2012015125

PATIENT
  Age: 25 Year
  Sex: Female

DRUGS (3)
  1. ENBREL [Suspect]
     Dosage: 50 MG, WEEKLY
     Route: 058
     Dates: start: 20120425
  2. ENBREL [Suspect]
     Dosage: 50 MG, WEEKLY
     Route: 058
     Dates: start: 20111214, end: 20120201
  3. ENBREL [Suspect]
     Indication: PSORIASIS
     Dosage: 50 MG, WEEKLY
     Route: 058
     Dates: start: 20070614, end: 20091214

REACTIONS (10)
  - INJECTION SITE HAEMORRHAGE [None]
  - PRURITUS [None]
  - HYPOTENSION [None]
  - DIZZINESS [None]
  - AMNESIA [None]
  - INJECTION SITE PAIN [None]
  - PAIN [None]
  - ABORTION [None]
  - STRESS [None]
  - INJECTION SITE HAEMATOMA [None]
